FAERS Safety Report 9727813 (Version 1)
Quarter: 2013Q4

REPORT INFORMATION
  Report Type: Spontaneous
  Country: US (occurrence: US)
  Receive Date: 20131204
  Receipt Date: 20131204
  Transmission Date: 20140711
  Serious: No
  Sender: FDA-Public Use
  Company Number: US-009507513-1312USA001454

PATIENT
  Age: 19 Year
  Sex: 0
  Weight: 74.83 kg

DRUGS (1)
  1. NUVARING [Suspect]
     Indication: CONTRACEPTION
     Dosage: UNK
     Route: 067
     Dates: start: 20131125, end: 20131128

REACTIONS (2)
  - Menstruation normal [Unknown]
  - Incorrect drug administration duration [Unknown]
